FAERS Safety Report 5732209-9 (Version None)
Quarter: 2008Q2

REPORT INFORMATION
  Report Type: 
  Country: None (occurrence: None)
  Receive Date: 20080508
  Receipt Date: 20080507
  Transmission Date: 20081010
  Serious: Yes (Other)
  Sender: FDA-Public Use
  Company Number: GB-BOEHRINGER INGELHEIM GMBH, GERMANY-2008-DE-02705GD

PATIENT

DRUGS (2)
  1. MORPHINE [Suspect]
     Route: 037
  2. MORPHINE [Suspect]

REACTIONS (3)
  - ACCIDENTAL OVERDOSE [None]
  - DRUG ADMINISTERED AT INAPPROPRIATE SITE [None]
  - URTICARIA [None]
